FAERS Safety Report 12520564 (Version 3)
Quarter: 2016Q3

REPORT INFORMATION
  Report Type: Spontaneous
  Country: JP (occurrence: JP)
  Receive Date: 20160701
  Receipt Date: 20160714
  Transmission Date: 20161109
  Serious: Yes (Other)
  Sender: FDA-Public Use
  Company Number: JP-009507513-1606JPN012290

PATIENT
  Sex: Female

DRUGS (3)
  1. BELSOMRA [Suspect]
     Active Substance: SUVOREXANT
     Dosage: UNK
     Route: 048
  2. ABILIFY [Concomitant]
     Active Substance: ARIPIPRAZOLE
     Indication: DEPRESSION
     Dosage: DAILY DOSE UNKNOWN
     Route: 048
  3. BELSOMRA [Suspect]
     Active Substance: SUVOREXANT
     Indication: INSOMNIA
     Dosage: 20 MG EVERY 5 MINUTES FOR A TOTAL OF 3 TABLETS
     Route: 048

REACTIONS (4)
  - Intentional overdose [Unknown]
  - Drug ineffective [Unknown]
  - Anxiety [Unknown]
  - Depressed level of consciousness [Recovered/Resolved]
